FAERS Safety Report 6531366-4 (Version None)
Quarter: 2010Q1

REPORT INFORMATION
  Report Type: 
  Country: None (occurrence: None)
  Receive Date: 20100108
  Receipt Date: 20091005
  Transmission Date: 20100710
  Serious: No
  Sender: FDA-Public Use
  Company Number: A0811014A

PATIENT
  Age: 43 Year
  Sex: Female

DRUGS (4)
  1. TYKERB [Suspect]
     Dosage: 1250MG PER DAY
     Route: 048
     Dates: start: 20090801
  2. RADIATION THERAPY [Suspect]
  3. LITHIUM CARBONATE [Suspect]
     Route: 065
  4. DECADRON [Suspect]
     Route: 065

REACTIONS (5)
  - FALL [None]
  - ILL-DEFINED DISORDER [None]
  - RASH [None]
  - SPEECH DISORDER [None]
  - STOMATITIS [None]
